FAERS Safety Report 6928855-7 (Version None)
Quarter: 2010Q3

REPORT INFORMATION
  Report Type: 
  Country: None (occurrence: None)
  Receive Date: 20100817
  Receipt Date: 20100813
  Transmission Date: 20110219
  Serious: Yes (Hospitalization, Other)
  Sender: FDA-Public Use
  Company Number: US-JNJCH-2005038660

PATIENT
  Sex: Male
  Weight: 90.7 kg

DRUGS (7)
  1. SUDAFED 12 HOUR [Suspect]
     Indication: SINUS CONGESTION
     Dosage: TEXT:2 TABLETS 4X DAILY INTERMITTENTLY
     Route: 048
     Dates: start: 19750101, end: 20050225
  2. ACTIFED [Suspect]
     Indication: SINUS CONGESTION
     Dosage: TEXT:2 TABLETS 4X DAILY INTERMITTENTLY
     Route: 048
     Dates: start: 19750101, end: 20050225
  3. PARACETAMOL [Concomitant]
     Indication: HEADACHE
     Dosage: TEXT:AS NEEDED
     Route: 065
  4. NAPROXEN SODIUM [Concomitant]
     Indication: ANALGESIC THERAPY
     Dosage: TEXT:4 PER DAY PRN
     Route: 065
  5. ACETYLSALICYLIC ACID [Concomitant]
     Indication: ANALGESIC THERAPY
     Dosage: TEXT:4 PER DAY PRN
     Route: 065
  6. LORATADINE [Concomitant]
     Indication: SINUS CONGESTION
     Dosage: TEXT:UNSPECIFIED
     Route: 065
  7. FEXOFENADINE HYDROCHLORIDE [Concomitant]
     Indication: SINUS CONGESTION
     Dosage: TEXT:UNSPECIFIED
     Route: 065

REACTIONS (7)
  - DEPENDENCE [None]
  - HEART RATE IRREGULAR [None]
  - HYPERTENSION [None]
  - NEPHROLITHIASIS [None]
  - PROSTATOMEGALY [None]
  - RETINAL DETACHMENT [None]
  - TEMPERATURE INTOLERANCE [None]
